FAERS Safety Report 18542223 (Version 2)
Quarter: 2020Q4

REPORT INFORMATION
  Report Type: Spontaneous
  Country: US (occurrence: US)
  Receive Date: 20201125
  Receipt Date: 20201211
  Transmission Date: 20210114
  Serious: No
  Sender: FDA-Public Use
  Company Number: US-BIOGEN-2020BI00888425

PATIENT
  Age: 46 Year
  Sex: Male

DRUGS (3)
  1. TECFIDERA [Suspect]
     Active Substance: DIMETHYL FUMARATE
     Route: 065
     Dates: start: 20200612
  2. TECFIDERA [Suspect]
     Active Substance: DIMETHYL FUMARATE
     Indication: MULTIPLE SCLEROSIS
     Dosage: TITRATION DOSE IS 120MG TWICE DAILY FOR DAYS 1-7, THEN WILL TAKE 240MG TWICE DAILY THEREAFTER STA...
     Route: 048
     Dates: start: 20200610
  3. TECFIDERA [Suspect]
     Active Substance: DIMETHYL FUMARATE
     Dosage: TITRATION DOSE IS 120MG TWICE DAILY FOR DAYS 1-7, THEN WILL TAKE 240MG TWICE DAILY THEREAFTER STA...
     Route: 048

REACTIONS (4)
  - Multiple sclerosis relapse [Not Recovered/Not Resolved]
  - Flushing [Unknown]
  - Hot flush [Recovered/Resolved]
  - Intentional product misuse [Unknown]

NARRATIVE: CASE EVENT DATE: 202006
